FAERS Safety Report 17605117 (Version 1)
Quarter: 2020Q1

REPORT INFORMATION
  Report Type: Spontaneous
  Country: US (occurrence: US)
  Receive Date: 20200331
  Receipt Date: 20200331
  Transmission Date: 20200409
  Serious: Yes (Hospitalization, Other)
  Sender: FDA-Public Use
  Company Number: US-ACCORD-177738

PATIENT
  Age: 10 Year
  Sex: Male

DRUGS (5)
  1. ETOPOSIDE. [Suspect]
     Active Substance: ETOPOSIDE
     Indication: CLEAR CELL SARCOMA OF THE KIDNEY
     Dosage: RECEIVED 12 WEEKS OF NEOADJUVANT CHEMOTHERAPY WITH VINCRISTINE, DOXORUBICIN, AND CYCLOPHOSPHAMIDE
  2. DOXORUBICIN [Suspect]
     Active Substance: DOXORUBICIN
     Indication: CLEAR CELL SARCOMA OF THE KIDNEY
     Dosage: RECEIVED 12 WEEKS OF NEOADJUVANT CHEMOTHERAPY WITH VINCRISTINE, DOXORUBICIN, AND CYCLOPHOSPHAMIDE
  3. CYCLOPHOSPHAMIDE/CYCLOPHOSPHAMIDE MONOHYDRATE [Suspect]
     Active Substance: CYCLOPHOSPHAMIDE
     Indication: CLEAR CELL SARCOMA OF THE KIDNEY
     Dosage: ALTERNATING WITH CYCLOPHOSPHAMIDE, ETOPOSIDE, AND CARBOPLATIN EVERY 3 WEEKS.
  4. CARBOPLATIN. [Suspect]
     Active Substance: CARBOPLATIN
     Indication: CLEAR CELL SARCOMA OF THE KIDNEY
     Dosage: RECEIVED 12 WEEKS OF NEOADJUVANT CHEMOTHERAPY WITH VINCRISTINE, DOXORUBICIN, AND CYCLOPHOSPHAMIDE
  5. VINCRISTINE [Suspect]
     Active Substance: VINCRISTINE
     Indication: CLEAR CELL SARCOMA OF THE KIDNEY
     Dosage: RECEIVED 12 WEEKS OF NEOADJUVANT CHEMOTHERAPY WITH VINCRISTINE, DOXORUBICIN, AND CYCLOPHOSPHAMIDE

REACTIONS (2)
  - Septic shock [Unknown]
  - Off label use [Unknown]
